FAERS Safety Report 18025168 (Version 15)
Quarter: 2021Q3

REPORT INFORMATION
  Report Type: Spontaneous
  Country: GB (occurrence: GB)
  Receive Date: 20200715
  Receipt Date: 20210925
  Transmission Date: 20211014
  Serious: Yes (Other)
  Sender: FDA-Public Use
  Company Number: NVSC2020GB190700

PATIENT
  Age: 54 Year
  Sex: Male

DRUGS (213)
  1. SANDO?K [POTASSIUM CHLORIDE] [Suspect]
     Active Substance: POTASSIUM CHLORIDE
     Indication: ILL-DEFINED DISORDER
     Dosage: 6 DF, QD (2 DF, TID)
     Route: 061
     Dates: start: 2006
  2. POTASSIUM PHOSPHATE DIBASIC [Suspect]
     Active Substance: POTASSIUM PHOSPHATE, DIBASIC
     Indication: PNEUMONIA
     Dosage: UNK
     Route: 065
  3. TINZAPARIN [Suspect]
     Active Substance: TINZAPARIN
     Indication: PNEUMONIA
     Dosage: 3500 UL, QD (DAILY DOSE TEXT: 3500 MICROLITERS 1/1DAYS)
     Route: 065
     Dates: start: 2006
  4. PHYTOMENADIONE [Suspect]
     Active Substance: PHYTONADIONE
     Indication: ILL-DEFINED DISORDER
     Dosage: UNK AS NECESSARY)
     Route: 065
     Dates: start: 2006
  5. FUROSEMIDE. [Suspect]
     Active Substance: FUROSEMIDE
     Indication: PNEUMONIA
     Dosage: 20 MG, QD
     Route: 048
  6. FLUCONAZOLE. [Suspect]
     Active Substance: FLUCONAZOLE
     Indication: ILL-DEFINED DISORDER
     Dosage: 200 MG,QD (DAILY DOSE: 200 MILLIGRAM(S))
     Route: 042
     Dates: start: 2006
  7. SODIUM BICARBONATE. [Suspect]
     Active Substance: SODIUM BICARBONATE
     Indication: PNEUMONIA
     Dosage: 100 MG, QH (ADMINISTRATION OVER AN HOUR)
     Route: 042
  8. FRAGMIN [Suspect]
     Active Substance: DALTEPARIN SODIUM
     Indication: PNEUMONIA
     Dosage: 2500 IU, QD
     Route: 058
  9. PIRITON [Suspect]
     Active Substance: CHLORPHENIRAMINE MALEATE
     Dosage: 10 MG, QD
     Route: 042
     Dates: start: 2006
  10. PIRITON [Suspect]
     Active Substance: CHLORPHENIRAMINE MALEATE
     Dosage: 40 MG, QD
     Route: 042
     Dates: start: 2006
  11. AQUASEPT [Suspect]
     Active Substance: TRICLOSAN
     Dosage: UNK
     Route: 003
  12. HUMAN ACTRAPID [Suspect]
     Active Substance: INSULIN HUMAN
     Indication: TOXIC EPIDERMAL NECROLYSIS
     Dosage: UNK (50 UNITS/50ML)
     Route: 042
  13. ENOXAPARIN SODIUM. [Suspect]
     Active Substance: ENOXAPARIN SODIUM
     Dosage: 20 MG, QD
     Route: 058
     Dates: start: 2006
  14. SILVER SULFADIAZINE. [Suspect]
     Active Substance: SILVER SULFADIAZINE
     Indication: ILL-DEFINED DISORDER
     Dosage: UNK
     Route: 061
     Dates: start: 2006
  15. VITAMIN B [Suspect]
     Active Substance: VITAMIN B
     Dosage: 50 UNITS/50ML
     Route: 065
     Dates: start: 2006
  16. NOREPINEPHRINE. [Suspect]
     Active Substance: NOREPINEPHRINE
     Indication: ILL-DEFINED DISORDER
     Dosage: UNK
     Route: 065
     Dates: start: 2006
  17. ACETYLSALICYLIC ACID [Suspect]
     Active Substance: ASPIRIN
     Dosage: UNK
     Route: 048
  18. THIAMINE NITRATE [Suspect]
     Active Substance: THIAMINE MONONITRATE
     Indication: PNEUMONIA
     Dosage: 100 MG, QD
     Route: 048
     Dates: start: 2006
  19. POTASSIUM PHOSPHATE MONOBASIC [Suspect]
     Active Substance: POTASSIUM PHOSPHATE, MONOBASIC
     Indication: PNEUMONIA
     Dosage: UNK
     Route: 065
     Dates: start: 2006
  20. POTASSIUM PHOSPHATE MONOBASIC [Suspect]
     Active Substance: POTASSIUM PHOSPHATE, MONOBASIC
     Indication: ILL-DEFINED DISORDER
  21. DALTEPARIN SODIUM [Suspect]
     Active Substance: DALTEPARIN SODIUM
     Indication: ILL-DEFINED DISORDER
     Dosage: UNK, QD
     Route: 065
  22. ATROVENT [Concomitant]
     Active Substance: IPRATROPIUM BROMIDE
     Dosage: AS NECESSARY (NEBULISER LIQUID)
     Route: 048
  23. PANTOPRAZOLE [Concomitant]
     Active Substance: PANTOPRAZOLE
     Dosage: DAILY DOSE: 40 MILLIGRAM(S)
     Route: 042
  24. TRICLOSAN. [Concomitant]
     Active Substance: TRICLOSAN
     Indication: PNEUMONIA
     Dosage: 24 DF
     Route: 065
  25. SIMVASTATIN. [Suspect]
     Active Substance: SIMVASTATIN
     Indication: PNEUMONIA
     Dosage: 40 MG TABLET, DAILY
     Route: 048
     Dates: start: 2006
  26. LORAZEPAM. [Suspect]
     Active Substance: LORAZEPAM
     Indication: ILL-DEFINED DISORDER
     Dosage: UNK, QD (1?2MG ONCE ONLY)
     Route: 065
     Dates: start: 2006
  27. SANDO?K [POTASSIUM CHLORIDE] [Suspect]
     Active Substance: POTASSIUM CHLORIDE
     Dosage: UNK, TID
     Route: 065
  28. SALBUTAMOL SULFATE [Suspect]
     Active Substance: ALBUTEROL SULFATE
     Indication: ILL-DEFINED DISORDER
     Dosage: 1 DF, PRN (AS NECESSARY)
     Route: 065
  29. POTASSIUM CHLORIDE. [Suspect]
     Active Substance: POTASSIUM CHLORIDE
     Indication: PNEUMONIA
     Dosage: UNK UNK, QD (40MMOLS/100ML INFUSION)
     Route: 065
     Dates: start: 2006
  30. POTASSIUM CHLORIDE. [Suspect]
     Active Substance: POTASSIUM CHLORIDE
     Dosage: UNK UNK, QD (0.33 DAY)
     Route: 065
     Dates: start: 2006
  31. CLEXANE [Suspect]
     Active Substance: ENOXAPARIN SODIUM
     Indication: PNEUMONIA
     Dosage: 20 MG, QD
     Route: 065
  32. CLEXANE [Suspect]
     Active Substance: ENOXAPARIN SODIUM
     Dosage: 20 MG, QD
     Route: 058
  33. HYDROCORTISONE HYDROGEN SUCCINATE [Suspect]
     Active Substance: HYDROCORTISONE HEMISUCCINATE ANHYDROUS
     Indication: ILL-DEFINED DISORDER
     Dosage: 100 MG,QD (DAILY DOSE TEXT: 100MG 1 TOTAL)
     Route: 042
     Dates: start: 2006
  34. SULFADIAZINE. [Suspect]
     Active Substance: SULFADIAZINE
     Dosage: UNK
     Route: 061
  35. NORADRENALINE HYDROCHLORIDE [Suspect]
     Active Substance: NOREPINEPHRINE HYDROCHLORIDE, (+/-)-
     Dosage: UNK
     Route: 065
     Dates: start: 2006
  36. THIAMINE HYDROCHLORIDE. [Suspect]
     Active Substance: THIAMINE HYDROCHLORIDE
     Indication: ILL-DEFINED DISORDER
     Dosage: 100 MG, QD
     Route: 048
     Dates: start: 2006
  37. THIAMINE HYDROCHLORIDE. [Suspect]
     Active Substance: THIAMINE HYDROCHLORIDE
     Indication: PNEUMONIA
     Dosage: 100 MG, QD
     Route: 048
     Dates: start: 2006
  38. THIAMINE HYDROCHLORIDE. [Suspect]
     Active Substance: THIAMINE HYDROCHLORIDE
     Dosage: 100 MG, TID
     Route: 048
  39. THIAMINE HYDROCHLORIDE. [Suspect]
     Active Substance: THIAMINE HYDROCHLORIDE
     Dosage: 100 MG, QD
     Route: 042
  40. FUROSEMIDE. [Suspect]
     Active Substance: FUROSEMIDE
     Dosage: 20 MG, QD  (DAILY DOSE: 20 MILLIGRAM(S))
     Route: 048
     Dates: start: 2006
  41. FLUCONAZOLE. [Suspect]
     Active Substance: FLUCONAZOLE
     Indication: PNEUMONIA
     Dosage: 200 MG, QD
     Route: 042
     Dates: start: 2006
  42. LANSOPRAZOLE. [Suspect]
     Active Substance: LANSOPRAZOLE
     Indication: PNEUMONIA
     Dosage: 3 G (1 G,TID (DAILY DOSE: 3 GRAM(S), 1 G, TID), (0.33)
     Route: 065
  43. ALFENTANIL HYDROCHLORIDE. [Suspect]
     Active Substance: ALFENTANIL HYDROCHLORIDE
     Indication: PRODUCT USED FOR UNKNOWN INDICATION
  44. SODIUM BICARBONATE. [Suspect]
     Active Substance: SODIUM BICARBONATE
     Dosage: 100 ML, QH
     Route: 042
  45. FRAGMIN [Suspect]
     Active Substance: DALTEPARIN SODIUM
     Dosage: 200 IU, QD
     Route: 065
  46. SODIUM CHLORIDE. [Suspect]
     Active Substance: SODIUM CHLORIDE
     Indication: ILL-DEFINED DISORDER
     Dosage: 0.9 %, QD
     Route: 042
     Dates: start: 2006
  47. FLAMAZINE [Suspect]
     Active Substance: SILVER SULFADIAZINE
     Dosage: TID
     Route: 065
  48. ROCEPHIN [Suspect]
     Active Substance: CEFTRIAXONE SODIUM
     Indication: ILL-DEFINED DISORDER
     Dosage: 2 G, QD
     Route: 042
     Dates: start: 2006
  49. CALCIUM GLUCONATE. [Suspect]
     Active Substance: CALCIUM GLUCONATE
     Indication: ILL-DEFINED DISORDER
     Dosage: 10 ML
     Route: 042
     Dates: start: 2006
  50. POTASSIUM CANRENOATE [Suspect]
     Active Substance: CANRENOATE POTASSIUM
     Indication: ILL-DEFINED DISORDER
     Dosage: UNK
     Route: 065
  51. HEPARIN CALCIUM [Suspect]
     Active Substance: HEPARIN CALCIUM
     Indication: PRODUCT USED FOR UNKNOWN INDICATION
     Dosage: UNK
     Route: 065
  52. VITAMIN B [Suspect]
     Active Substance: VITAMIN B
     Dosage: 100 MG, QD
     Route: 048
  53. ZOTON [Suspect]
     Active Substance: LANSOPRAZOLE
     Dosage: 30 MG, QD
     Route: 065
  54. DALTEPARIN SODIUM [Suspect]
     Active Substance: DALTEPARIN SODIUM
     Dosage: 200 IU
     Route: 058
     Dates: start: 2006
  55. CITRAVESCENT [CITRIC ACID MONOHYDRATE\SODIUM BICARBONATE\TARTARIC ACID] [Suspect]
     Active Substance: CITRIC ACID MONOHYDRATE\SODIUM BICARBONATE\TARTARIC ACID
     Indication: ILL-DEFINED DISORDER
  56. NOREPINEPHRINE BITARTRATE. [Suspect]
     Active Substance: NOREPINEPHRINE BITARTRATE
     Indication: ILL-DEFINED DISORDER
     Dosage: UNK
     Route: 065
     Dates: start: 2006
  57. ALFENTANIL. [Suspect]
     Active Substance: ALFENTANIL
     Indication: PNEUMONIA
     Dosage: UNK
     Route: 042
     Dates: start: 2006
  58. ALFENTANIL. [Suspect]
     Active Substance: ALFENTANIL
     Dosage: 120 DF
     Route: 042
  59. ATROVENT [Concomitant]
     Active Substance: IPRATROPIUM BROMIDE
     Dosage: UNK
     Route: 065
  60. CO?AMOXICLAV [Concomitant]
     Active Substance: AMOXICILLIN\CLAVULANATE POTASSIUM
     Dosage: 875 MG, TID
     Route: 065
  61. VANCOMYCIN [Concomitant]
     Active Substance: VANCOMYCIN
     Indication: ILL-DEFINED DISORDER
     Dosage: 1 G, QD
     Route: 042
  62. TAZOCIN [Concomitant]
     Active Substance: PIPERACILLIN SODIUM\TAZOBACTAM SODIUM
     Dosage: 18 GRAM, QID
     Route: 042
     Dates: start: 20061004
  63. CIPROFLOX [Concomitant]
     Active Substance: CIPROFLOXACIN HYDROCHLORIDE
     Indication: ILL-DEFINED DISORDER
     Dosage: 400 MG, QD (DAILY DOSE: 400 MILLIGRAM(S))
     Route: 042
  64. METOCLOPRAMIDE. [Concomitant]
     Active Substance: METOCLOPRAMIDE
     Indication: ILL-DEFINED DISORDER
     Dosage: 10 MG
     Route: 042
  65. TRICLOSAN. [Concomitant]
     Active Substance: TRICLOSAN
     Indication: ILL-DEFINED DISORDER
     Dosage: 1 G, QD
     Route: 042
     Dates: start: 2006
  66. OMEPRAZOLE. [Suspect]
     Active Substance: OMEPRAZOLE
     Indication: ILL-DEFINED DISORDER
     Dosage: 40 MG,QD (DAILY DOSE: 40 MILLIGRAM(S))
     Route: 042
     Dates: start: 2006
  67. LACTULOSE. [Suspect]
     Active Substance: LACTULOSE
     Dosage: 1 ML, QD
     Route: 065
  68. AMOXICILLIN TRIHYDRATE [Suspect]
     Active Substance: AMOXICILLIN
     Dosage: 1 G, Q8H (1 G TID)
     Route: 042
     Dates: start: 20060913
  69. LORAZEPAM. [Suspect]
     Active Substance: LORAZEPAM
     Indication: PNEUMONIA
     Dosage: UNK
     Route: 065
  70. SANDO?K [POTASSIUM CHLORIDE] [Suspect]
     Active Substance: POTASSIUM CHLORIDE
     Indication: PNEUMONIA
     Dosage: 2 DF, QD
     Route: 065
     Dates: start: 2006
  71. POTASSIUM CHLORIDE. [Suspect]
     Active Substance: POTASSIUM CHLORIDE
     Dosage: 2 DF, TID
     Route: 061
     Dates: start: 2006
  72. CLEXANE [Suspect]
     Active Substance: ENOXAPARIN SODIUM
     Dosage: 20 MG, QD
     Route: 058
  73. TINZAPARIN [Suspect]
     Active Substance: TINZAPARIN
     Indication: ILL-DEFINED DISORDER
     Dosage: 3500 UG, QD
     Route: 065
     Dates: start: 2006
  74. TINZAPARIN [Suspect]
     Active Substance: TINZAPARIN
     Dosage: 3500 ML, QD
     Route: 065
     Dates: start: 2006
  75. NORADRENALINE HYDROCHLORIDE [Suspect]
     Active Substance: NOREPINEPHRINE HYDROCHLORIDE, (+/-)-
     Indication: ILL-DEFINED DISORDER
     Dosage: UNK
     Route: 065
  76. ALFENTANIL HYDROCHLORIDE. [Suspect]
     Active Substance: ALFENTANIL HYDROCHLORIDE
     Indication: PNEUMONIA
     Dosage: UNK
     Route: 042
     Dates: start: 2006
  77. SODIUM BICARBONATE. [Suspect]
     Active Substance: SODIUM BICARBONATE
     Dosage: 100 MG, QD
     Route: 048
  78. SODIUM CHLORIDE. [Suspect]
     Active Substance: SODIUM CHLORIDE
     Indication: PNEUMONIA
     Dosage: 0.9 %, QD
     Route: 042
     Dates: start: 2006
  79. PIRITON [Suspect]
     Active Substance: CHLORPHENIRAMINE MALEATE
     Dosage: 10 MG, QD
     Route: 042
  80. PIRITON [Suspect]
     Active Substance: CHLORPHENIRAMINE MALEATE
     Dosage: 10 MG, Q6H
     Route: 042
     Dates: start: 2006
  81. SODIUM HYDROGEN CARBONATE [Suspect]
     Active Substance: SODIUM BICARBONATE
     Indication: PRODUCT USED FOR UNKNOWN INDICATION
     Dosage: 100 MG, QH (ADMINISTRATION OVER AN HOUR)
     Route: 042
  82. ENOXAPARIN SODIUM. [Suspect]
     Active Substance: ENOXAPARIN SODIUM
     Dosage: 20 MG, QD
     Route: 065
  83. HYDROCORTISONE. [Suspect]
     Active Substance: HYDROCORTISONE
     Dosage: 100 MG, QD (DAILY DOSE TEXT: 100MG 1 TOTAL)
     Route: 042
  84. ZOTON [Suspect]
     Active Substance: LANSOPRAZOLE
     Indication: ILL-DEFINED DISORDER
     Dosage: 3 G, QD
     Route: 065
     Dates: start: 2006
  85. THIAMINE NITRATE [Suspect]
     Active Substance: THIAMINE MONONITRATE
     Indication: ILL-DEFINED DISORDER
  86. POTASSIUM IODIDE. [Suspect]
     Active Substance: POTASSIUM IODIDE
     Indication: PNEUMONIA
     Dosage: UNK
     Route: 065
     Dates: start: 2006
  87. MUPIROCIN. [Suspect]
     Active Substance: MUPIROCIN
     Indication: PNEUMONIA
     Dosage: 10ML/50% 8MMOLS/50MLS
     Route: 065
     Dates: start: 2006
  88. CITRAVESCENT [CITRIC ACID MONOHYDRATE\SODIUM BICARBONATE\TARTARIC ACID] [Suspect]
     Active Substance: CITRIC ACID MONOHYDRATE\SODIUM BICARBONATE\TARTARIC ACID
     Indication: PNEUMONIA
     Dosage: 100 MG, QD
     Route: 048
     Dates: start: 2006
  89. CANRENOIC ACID [Suspect]
     Active Substance: CANRENOIC ACID
     Indication: PRODUCT USED FOR UNKNOWN INDICATION
     Dosage: UNK
     Route: 065
  90. ATROVENT [Concomitant]
     Active Substance: IPRATROPIUM BROMIDE
     Dosage: UNK UNK, PRN
     Route: 065
  91. CO?AMOXICLAV [Concomitant]
     Active Substance: AMOXICILLIN\CLAVULANATE POTASSIUM
     Indication: PRODUCT USED FOR UNKNOWN INDICATION
     Dosage: 2625 MG, QD
     Route: 065
     Dates: start: 20060913
  92. TRICLOSAN. [Concomitant]
     Active Substance: TRICLOSAN
     Dosage: UNK
     Route: 065
     Dates: start: 2006
  93. PROPOFOL. [Suspect]
     Active Substance: PROPOFOL
     Indication: ILL-DEFINED DISORDER
     Dosage: UNK
     Route: 042
     Dates: start: 2006
  94. PROPOFOL. [Suspect]
     Active Substance: PROPOFOL
     Indication: PNEUMONIA
  95. OMEPRAZOLE. [Suspect]
     Active Substance: OMEPRAZOLE
     Indication: PNEUMONIA
     Dosage: 40 MG, QD
     Route: 065
  96. PARACETAMOL [Suspect]
     Active Substance: ACETAMINOPHEN
     Indication: ILL-DEFINED DISORDER
     Dosage: UNK (DAILY DOSE: UNKNOWN)
     Route: 065
     Dates: start: 2006
  97. SIMVASTATIN. [Suspect]
     Active Substance: SIMVASTATIN
     Indication: ILL-DEFINED DISORDER
     Dosage: 40 MG, QD (DAILY DOSE: 40 MILLIGRAM(S))
     Route: 042
     Dates: start: 2006
  98. AMOXICILLIN TRIHYDRATE [Suspect]
     Active Substance: AMOXICILLIN
     Dosage: 250 MG, Q8H (250 MG, TID (750 MG))
     Route: 048
     Dates: start: 20060913
  99. SANDO?K [POTASSIUM CHLORIDE] [Suspect]
     Active Substance: POTASSIUM CHLORIDE
     Dosage: 2 DF, Q8H (DAILY DOSE TEXT: 2 DL 3/1DAYS)
     Route: 065
     Dates: start: 2006
  100. CLEXANE [Suspect]
     Active Substance: ENOXAPARIN SODIUM
     Indication: ILL-DEFINED DISORDER
     Dosage: 20 MG, QD ((DAILY DOSE: 20 MILLIGRAM(S))
     Route: 058
     Dates: start: 2006
  101. TINZAPARIN [Suspect]
     Active Substance: TINZAPARIN
     Dosage: 3500 UL, QD
     Route: 065
  102. DOBUTAMINE [Suspect]
     Active Substance: DOBUTAMINE HYDROCHLORIDE
     Indication: ILL-DEFINED DISORDER
     Dosage: UNK (UNKNOWN/D)
     Route: 065
     Dates: start: 2006
  103. HUMAN ACTRAPID [Suspect]
     Active Substance: INSULIN HUMAN
     Indication: DIABETES MELLITUS
     Dosage: UNK (INTRAVENOUS INFUSION)
     Route: 065
  104. VITAMIN K [Suspect]
     Active Substance: PHYTONADIONE
     Indication: ILL-DEFINED DISORDER
     Dosage: UNK (50 UNITS/50ML)
     Route: 065
     Dates: start: 2006
  105. CALCIUM GLUCONATE. [Suspect]
     Active Substance: CALCIUM GLUCONATE
     Indication: PNEUMONIA
     Dosage: 10 ML, QD
     Route: 042
     Dates: start: 2006
  106. ENOXAPARIN SODIUM. [Suspect]
     Active Substance: ENOXAPARIN SODIUM
     Indication: PNEUMONIA
     Dosage: 20 MG, QD
     Route: 042
     Dates: start: 2006
  107. DALTEPARIN SODIUM [Suspect]
     Active Substance: DALTEPARIN SODIUM
     Dosage: 2500 IU, QD
     Route: 058
     Dates: start: 2006
  108. AMOXICILLIN SODIUM [Suspect]
     Active Substance: AMOXICILLIN SODIUM
     Indication: ILL-DEFINED DISORDER
     Dosage: UNK
     Route: 065
  109. CHLORPHENAMINE [Suspect]
     Active Substance: CHLORPHENIRAMINE MALEATE
     Dosage: 10 MG (4 X DAILY)
     Route: 042
     Dates: start: 2006
  110. INSULIN HUMAN [Suspect]
     Active Substance: INSULIN HUMAN
     Indication: TOXIC EPIDERMAL NECROLYSIS
     Dosage: UNK (SOLUTION FOR INFUSION)
     Route: 042
  111. ATROVENT [Concomitant]
     Active Substance: IPRATROPIUM BROMIDE
     Dosage: 1 DF, PRN (NEBULISER LIQUID)
     Route: 048
  112. PARACETAMOL [Suspect]
     Active Substance: ACETAMINOPHEN
     Indication: PNEUMONIA
     Dosage: 50 ML (50 UNITS/50ML)
     Route: 042
  113. POTASSIUM CHLORIDE. [Suspect]
     Active Substance: POTASSIUM CHLORIDE
     Indication: ILL-DEFINED DISORDER
     Dosage: UNK UNK, TID (0.33 DAY)
     Route: 065
  114. POTASSIUM CHLORIDE. [Suspect]
     Active Substance: POTASSIUM CHLORIDE
     Dosage: UNK (2 DF 8HRS 2 DF 3/1 DAYS)
     Route: 065
  115. SULFADIAZINE. [Suspect]
     Active Substance: SULFADIAZINE
     Indication: ILL-DEFINED DISORDER
     Dosage: UNK, QD
     Route: 061
     Dates: start: 2006
  116. PHYTOMENADIONE [Suspect]
     Active Substance: PHYTONADIONE
     Dosage: UNK
     Route: 065
  117. ASPIRIN. [Suspect]
     Active Substance: ASPIRIN
     Indication: ILL-DEFINED DISORDER
     Dosage: UNK
     Route: 048
  118. HUMAN ACTRAPID [Suspect]
     Active Substance: INSULIN HUMAN
     Indication: PNEUMONIA
     Dosage: UNK (50 UNITS/50ML)(SOLUTION FOR INFUSION)
     Route: 042
     Dates: start: 2006
  119. CALCIUM GLUCONATE. [Suspect]
     Active Substance: CALCIUM GLUCONATE
     Dosage: 10 MG
     Route: 042
  120. ERYTHROMYCIN. [Suspect]
     Active Substance: ERYTHROMYCIN
     Indication: ILL-DEFINED DISORDER
     Dosage: 250 MG, QD DAILY DOSE: 250 MILLIGRAM(S))
     Route: 050
  121. ATROVENT [Concomitant]
     Active Substance: IPRATROPIUM BROMIDE
     Indication: ILL-DEFINED DISORDER
     Dosage: UNK UNK, PRN
     Route: 065
  122. METOCHLOPRAMIDE [Concomitant]
     Active Substance: METOCLOPRAMIDE HYDROCHLORIDE
     Dosage: 10 MG, QD
     Route: 042
  123. ZOPICLONE [Concomitant]
     Active Substance: ZOPICLONE
     Dosage: UNK UNK, QD
     Route: 048
  124. CO?AMOXICLAV [Concomitant]
     Active Substance: AMOXICILLIN\CLAVULANATE POTASSIUM
     Dosage: 1125 MG, QD
     Route: 065
     Dates: start: 20060913
  125. TAZOCIN [Concomitant]
     Active Substance: PIPERACILLIN SODIUM\TAZOBACTAM SODIUM
     Dosage: 4.5 MG, QID
     Route: 042
     Dates: start: 2006
  126. TAZOCIN [Concomitant]
     Active Substance: PIPERACILLIN SODIUM\TAZOBACTAM SODIUM
     Dosage: 4.5 MG, QID
     Route: 042
  127. TAZOCIN [Concomitant]
     Active Substance: PIPERACILLIN SODIUM\TAZOBACTAM SODIUM
     Dosage: 18 G, QD
     Route: 065
     Dates: start: 20061004, end: 20061009
  128. IPRATROPIUM BROMIDE. [Concomitant]
     Active Substance: IPRATROPIUM BROMIDE
     Indication: ILL-DEFINED DISORDER
     Dosage: UNK
     Route: 065
  129. LACTULOSE. [Suspect]
     Active Substance: LACTULOSE
     Indication: ILL-DEFINED DISORDER
     Dosage: 10 ML, QD (DAILY DOSE: 10 MILLILITRE(S)) (NASOGASTRIC)
     Route: 065
     Dates: start: 2006
  130. AMOXICILLIN TRIHYDRATE [Suspect]
     Active Substance: AMOXICILLIN
     Indication: PNEUMONIA
     Dosage: 750 MG, QD
     Route: 042
     Dates: start: 20060913
  131. CEFTRIAXONE SODIUM. [Suspect]
     Active Substance: CEFTRIAXONE SODIUM
     Dosage: 2 G
     Route: 042
  132. SANDO?K [POTASSIUM CHLORIDE] [Suspect]
     Active Substance: POTASSIUM CHLORIDE
     Dosage: UNK (40MMOLS/100ML INFUSION; TIME INTERVAL)
     Route: 065
  133. AMOXICILLIN. [Suspect]
     Active Substance: AMOXICILLIN
     Indication: PNEUMONIA
     Dosage: 1 G, TID
     Route: 042
  134. HEPARIN SODIUM. [Suspect]
     Active Substance: HEPARIN SODIUM
     Indication: ILL-DEFINED DISORDER
     Dosage: 3500 UG, QD
     Route: 065
  135. POTASSIUM PHOSPHATE DIBASIC [Suspect]
     Active Substance: POTASSIUM PHOSPHATE, DIBASIC
     Indication: ILL-DEFINED DISORDER
     Dosage: UNK
     Route: 065
     Dates: start: 2006
  136. MAGNESIUM SULFATE. [Suspect]
     Active Substance: MAGNESIUM SULFATE
     Indication: ILL-DEFINED DISORDER
     Dosage: 10 ML, TOTAL, (50% 8MMOLS/50MLS (INFUSION))
     Route: 061
     Dates: start: 2006
  137. FUROSEMIDE. [Suspect]
     Active Substance: FUROSEMIDE
     Dosage: 20 MG, QD (20 MG 2 X DAILY)
     Route: 048
     Dates: start: 2006
  138. CALCIUM CHLORIDE. [Suspect]
     Active Substance: CALCIUM CHLORIDE
     Dosage: 120 DF, (10 MILLILITER)
     Route: 042
  139. LANSOPRAZOLE. [Suspect]
     Active Substance: LANSOPRAZOLE
     Indication: ILL-DEFINED DISORDER
     Dosage: 30 MG, QD
     Route: 065
     Dates: start: 2006
  140. ALFENTANIL HYDROCHLORIDE. [Suspect]
     Active Substance: ALFENTANIL HYDROCHLORIDE
     Indication: ILL-DEFINED DISORDER
     Dosage: 120 DF
     Route: 061
  141. MAGNESIUM HYDROXIDE. [Suspect]
     Active Substance: MAGNESIUM HYDROXIDE
     Indication: ILL-DEFINED DISORDER
     Dosage: UNK (10ML/50% 8MMOLS/50MLS)
     Route: 061
     Dates: start: 2006
  142. PIRITON [Suspect]
     Active Substance: CHLORPHENIRAMINE MALEATE
     Indication: ILL-DEFINED DISORDER
     Dosage: 10 MG, QID
     Route: 042
  143. PIRITON [Suspect]
     Active Substance: CHLORPHENIRAMINE MALEATE
     Indication: PNEUMONIA
     Dosage: 40 MG, QD (DAILY DOSE: 40 MILLIGRAM(S), 10 MG, QID)
     Route: 042
     Dates: start: 2006
  144. PIRITON [Suspect]
     Active Substance: CHLORPHENIRAMINE MALEATE
     Dosage: 10 MG, QID (DAILY DOSE: 40 MILLIGRAM(S), 10 MG, QID)
     Route: 042
     Dates: start: 2006
  145. AQUASEPT [Suspect]
     Active Substance: TRICLOSAN
     Indication: ILL-DEFINED DISORDER
     Dosage: UNK (UNKNOWN/D)
     Route: 003
     Dates: start: 2006
  146. AQUASEPT [Suspect]
     Active Substance: TRICLOSAN
     Indication: PNEUMONIA
     Dosage: UNK (UNKNOWN/D)
     Route: 065
     Dates: start: 2006
  147. ROCEPHIN [Suspect]
     Active Substance: CEFTRIAXONE SODIUM
     Indication: PNEUMONIA
  148. SILVER SULFADIAZINE. [Suspect]
     Active Substance: SILVER SULFADIAZINE
     Indication: PNEUMONIA
     Dosage: UNK
     Route: 061
     Dates: start: 2006
  149. VITAMIN B [Suspect]
     Active Substance: VITAMIN B
     Dosage: 100 MG
     Route: 048
  150. VITAMIN B [Suspect]
     Active Substance: VITAMIN B
     Dosage: 100 MG, QD
     Route: 048
  151. ANHYDROUS CITRIC ACID [Suspect]
     Active Substance: ANHYDROUS CITRIC ACID
     Indication: PNEUMONIA
     Dosage: 100 MG, QD (50 UNITS/50ML)
     Route: 048
     Dates: start: 2006
  152. ANHYDROUS CITRIC ACID [Suspect]
     Active Substance: ANHYDROUS CITRIC ACID
     Indication: ILL-DEFINED DISORDER
  153. NOREPINEPHRINE. [Suspect]
     Active Substance: NOREPINEPHRINE
     Indication: PNEUMONIA
  154. BACTROBAN [Suspect]
     Active Substance: MUPIROCIN\MUPIROCIN CALCIUM
     Indication: ILL-DEFINED DISORDER
     Dosage: UNK
     Route: 065
  155. CHLORPHENAMINE [Suspect]
     Active Substance: CHLORPHENIRAMINE MALEATE
     Indication: PNEUMONIA
     Dosage: 10 MG, QID
     Route: 042
     Dates: start: 2006
  156. MUPIROCIN. [Suspect]
     Active Substance: MUPIROCIN
     Indication: ILL-DEFINED DISORDER
     Dosage: UNK
     Route: 065
     Dates: start: 2006
  157. ERYTHROMYCIN. [Suspect]
     Active Substance: ERYTHROMYCIN
     Dosage: UNK
     Route: 065
  158. NOREPINEPHRINE BITARTRATE. [Suspect]
     Active Substance: NOREPINEPHRINE BITARTRATE
     Indication: PNEUMONIA
  159. INSULIN HUMAN [Suspect]
     Active Substance: INSULIN HUMAN
     Indication: PNEUMONIA
     Dosage: 50 ML, (50 UNITS/50ML)
     Route: 042
     Dates: start: 2006
  160. ENOXAPARIN [Suspect]
     Active Substance: ENOXAPARIN
     Indication: PRODUCT USED FOR UNKNOWN INDICATION
     Dosage: 20 MG, QD
     Route: 065
  161. RIBOFLAVIN [Suspect]
     Active Substance: RIBOFLAVIN
     Indication: ILL-DEFINED DISORDER
     Dosage: UNK
     Route: 065
  162. METOCHLOPRAMIDE [Concomitant]
     Active Substance: METOCLOPRAMIDE HYDROCHLORIDE
     Indication: ILL-DEFINED DISORDER
     Dosage: 10 MG
     Route: 042
  163. TAZOCIN [Concomitant]
     Active Substance: PIPERACILLIN SODIUM\TAZOBACTAM SODIUM
     Dosage: 13.5 G, QID (INCREASED TO 4 TIMES DAILY BETWEEN 04 OCT 2006 AND 09 OCT 2006)
     Route: 042
     Dates: start: 20061004, end: 20061009
  164. TAZOCIN [Concomitant]
     Active Substance: PIPERACILLIN SODIUM\TAZOBACTAM SODIUM
     Dosage: 4.5 G, Q8H (INCREASED TO 4 TIMES DAILY)
     Route: 042
     Dates: start: 20061004, end: 20061009
  165. LACTULOSE. [Suspect]
     Active Substance: LACTULOSE
     Indication: PNEUMONIA
     Dosage: 10 ML
     Route: 065
  166. CEFTRIAXONE SODIUM. [Suspect]
     Active Substance: CEFTRIAXONE SODIUM
     Indication: ILL-DEFINED DISORDER
     Dosage: 2 G, QD
     Route: 042
     Dates: start: 2006
  167. SANDO?K [POTASSIUM CHLORIDE] [Suspect]
     Active Substance: POTASSIUM CHLORIDE
     Dosage: 2 DF, QD (DAILY DOSE TEXT: 2 DL 3/1DAYS)
     Route: 065
  168. SALBUTAMOL SULFATE [Suspect]
     Active Substance: ALBUTEROL SULFATE
     Indication: PNEUMONIA
     Dosage: 1 DF, PRN
     Route: 065
     Dates: start: 2006
  169. HYDROCORTISONE HYDROGEN SUCCINATE [Suspect]
     Active Substance: HYDROCORTISONE HEMISUCCINATE ANHYDROUS
     Indication: PNEUMONIA
     Dosage: 100 MG,UNK (DAILY DOSE TEXT: 100MG 1 TOTAL)
     Route: 042
  170. NORADRENALINE HYDROCHLORIDE [Suspect]
     Active Substance: NOREPINEPHRINE HYDROCHLORIDE, (+/-)-
     Indication: PNEUMONIA
     Dosage: UNK, QD
     Route: 065
     Dates: start: 2006
  171. FUROSEMIDE. [Suspect]
     Active Substance: FUROSEMIDE
     Dosage: 20 MG, QD (20 MG 2 X DAILY)
     Route: 042
     Dates: start: 2006
  172. CALCIUM CHLORIDE. [Suspect]
     Active Substance: CALCIUM CHLORIDE
     Indication: ILL-DEFINED DISORDER
     Dosage: UNK (DAILY DOSE: UNKNOWN)
     Route: 065
     Dates: start: 2006
  173. FRAGMIN [Suspect]
     Active Substance: DALTEPARIN SODIUM
     Indication: ILL-DEFINED DISORDER
     Dosage: 2500 IU, QD (DAILY DOSE: 2500 INTERNATIONAL UNITS, 2500 IU, QD)
     Route: 058
     Dates: start: 2006
  174. FLAMAZINE [Suspect]
     Active Substance: SILVER SULFADIAZINE
     Indication: ILL-DEFINED DISORDER
     Dosage: UNK
     Route: 065
     Dates: start: 2006
  175. VITAMIN K [Suspect]
     Active Substance: PHYTONADIONE
     Indication: PNEUMONIA
  176. ENOXAPARIN SODIUM. [Suspect]
     Active Substance: ENOXAPARIN SODIUM
     Indication: ILL-DEFINED DISORDER
     Dosage: 20 MG, 1X/DAY
     Route: 048
  177. HYDROCORTISONE. [Suspect]
     Active Substance: HYDROCORTISONE
     Indication: ILL-DEFINED DISORDER
     Dosage: 100 MG
     Route: 065
  178. VITAMIN B [Suspect]
     Active Substance: VITAMIN B
     Indication: ILL-DEFINED DISORDER
     Dosage: UNK
     Route: 065
  179. ZOTON [Suspect]
     Active Substance: LANSOPRAZOLE
     Indication: PNEUMONIA
     Dosage: 30 MG
     Route: 065
     Dates: start: 2006
  180. POTASSIUM IODIDE. [Suspect]
     Active Substance: POTASSIUM IODIDE
     Indication: ILL-DEFINED DISORDER
  181. DALTEPARIN SODIUM [Suspect]
     Active Substance: DALTEPARIN SODIUM
     Dosage: 250 IU
     Route: 058
  182. ATROVENT [Concomitant]
     Active Substance: IPRATROPIUM BROMIDE
     Dosage: UNK (NEBULISER LIQUID)
     Route: 065
  183. CO?AMOXICLAV [Concomitant]
     Active Substance: AMOXICILLIN\CLAVULANATE POTASSIUM
     Dosage: 375 MG, Q8H (DAILY DOSE TEXT: 375MG)
     Route: 065
  184. CO?AMOXICLAV [Concomitant]
     Active Substance: AMOXICILLIN\CLAVULANATE POTASSIUM
     Dosage: 250 MG
     Route: 065
  185. CO?AMOXICLAV [Concomitant]
     Active Substance: AMOXICILLIN\CLAVULANATE POTASSIUM
     Dosage: 875 MG, QD
     Route: 065
     Dates: start: 20060913
  186. TAZOCIN [Concomitant]
     Active Substance: PIPERACILLIN SODIUM\TAZOBACTAM SODIUM
     Indication: ILL-DEFINED DISORDER
     Dosage: 13.5 G, QD (INCREASED TO 4 TIMES DAILY BETWEEN 04/10/2006 AND)
     Route: 042
  187. TAZOCIN [Concomitant]
     Active Substance: PIPERACILLIN SODIUM\TAZOBACTAM SODIUM
     Dosage: 4.5 MG, QID (INCREASED TO 4 TIMES DAILY)
     Route: 042
     Dates: start: 20061004, end: 20061009
  188. TAZOCIN [Concomitant]
     Active Substance: PIPERACILLIN SODIUM\TAZOBACTAM SODIUM
     Dosage: 4.5 G, Q6H
     Route: 042
  189. METOCLOPRAMIDE. [Concomitant]
     Active Substance: METOCLOPRAMIDE
     Dosage: 10 MG
     Route: 042
  190. AMOXICILLIN TRIHYDRATE [Suspect]
     Active Substance: AMOXICILLIN
     Indication: ILL-DEFINED DISORDER
     Dosage: 3 G, QD
     Route: 042
     Dates: start: 20060913
  191. CEFTRIAXONE SODIUM. [Suspect]
     Active Substance: CEFTRIAXONE SODIUM
     Indication: PNEUMONIA
     Dosage: UNK
     Route: 065
     Dates: start: 2006
  192. CIPROFLOXACIN HYDROCHLORIDE. [Suspect]
     Active Substance: CIPROFLOXACIN HYDROCHLORIDE
     Indication: PRODUCT USED FOR UNKNOWN INDICATION
     Dosage: 400 MG, QD
     Route: 042
  193. SULFADIAZINE. [Suspect]
     Active Substance: SULFADIAZINE
     Dosage: UNK
     Route: 061
  194. MAGNESIUM SULFATE. [Suspect]
     Active Substance: MAGNESIUM SULFATE
     Indication: PNEUMONIA
     Dosage: UNK
     Route: 065
     Dates: start: 2006
  195. FUROSEMIDE. [Suspect]
     Active Substance: FUROSEMIDE
     Indication: ILL-DEFINED DISORDER
     Dosage: 20 MG, BID
     Route: 042
     Dates: start: 2006
  196. FUROSEMIDE. [Suspect]
     Active Substance: FUROSEMIDE
     Dosage: UNK
     Route: 042
  197. CALCIUM CHLORIDE. [Suspect]
     Active Substance: CALCIUM CHLORIDE
     Indication: PNEUMONIA
     Dosage: 120 UNK, (10 ML,UNK (DAILY DOSE: 10 MILLILITRE(S))
     Route: 042
  198. DOBUTAMINE [Suspect]
     Active Substance: DOBUTAMINE HYDROCHLORIDE
     Indication: PNEUMONIA
     Dosage: UNK
     Route: 065
  199. SODIUM BICARBONATE. [Suspect]
     Active Substance: SODIUM BICARBONATE
     Indication: ILL-DEFINED DISORDER
     Dosage: 100 MG, BIW
     Route: 042
     Dates: start: 2006
  200. PIRITON [Suspect]
     Active Substance: CHLORPHENIRAMINE MALEATE
     Dosage: 10 MG
     Route: 042
  201. FLAMAZINE [Suspect]
     Active Substance: SILVER SULFADIAZINE
     Dosage: UNK
     Route: 061
     Dates: start: 2006
  202. HYDROCORTISONE. [Suspect]
     Active Substance: HYDROCORTISONE
     Indication: PNEUMONIA
     Dosage: 100 MG, QD (DAILY DOSE TEXT: 100MG 1 TOTAL)
     Route: 042
     Dates: start: 2006
  203. BACTROBAN [Suspect]
     Active Substance: MUPIROCIN\MUPIROCIN CALCIUM
     Indication: PNEUMONIA
     Dosage: UNK (10ML/50 PERCENT 8MMOLS/50MLS)
     Route: 065
     Dates: start: 2006
  204. BACTROBAN [Suspect]
     Active Substance: MUPIROCIN\MUPIROCIN CALCIUM
     Dosage: UNK (UNKNOWN/D)
     Route: 065
     Dates: start: 2006
  205. ACETYLSALICYLIC ACID [Suspect]
     Active Substance: ASPIRIN
     Indication: ILL-DEFINED DISORDER
     Dosage: UNK, QD (1?2MG ONCE ONLY)
     Route: 065
  206. CHLORPHENAMINE [Suspect]
     Active Substance: CHLORPHENIRAMINE MALEATE
     Dosage: 40 MG (10 MG,QID (DAILY DOSE: 40 MG(S)))
     Route: 042
     Dates: start: 2006
  207. ERYTHROMYCIN. [Suspect]
     Active Substance: ERYTHROMYCIN
     Dosage: 25 MG
     Route: 065
  208. ATROVENT [Concomitant]
     Active Substance: IPRATROPIUM BROMIDE
     Dosage: UNK (NEBULISER LIQUID)
     Route: 048
  209. MIDODRINE HYDROCHLORIDE. [Concomitant]
     Active Substance: MIDODRINE HYDROCHLORIDE
     Indication: ILL-DEFINED DISORDER
     Dosage: UNK
     Route: 048
  210. ZOPICLONE [Concomitant]
     Active Substance: ZOPICLONE
     Indication: ILL-DEFINED DISORDER
     Dosage: UNK
     Route: 048
  211. PANTOPRAZOLE [Concomitant]
     Active Substance: PANTOPRAZOLE
     Indication: ILL-DEFINED DISORDER
     Dosage: 40 MG, QD
     Route: 042
  212. ERITHRIN [Concomitant]
     Indication: PRODUCT USED FOR UNKNOWN INDICATION
     Dosage: 250 MG
     Route: 065
  213. ERITHRIN [Concomitant]
     Dosage: 250 MG, QD
     Route: 050

REACTIONS (3)
  - Toxic epidermal necrolysis [Unknown]
  - Drug hypersensitivity [Unknown]
  - Product use in unapproved indication [Unknown]

NARRATIVE: CASE EVENT DATE: 2006
